FAERS Safety Report 8413945-2 (Version None)
Quarter: 2012Q2

REPORT INFORMATION
  Report Type: 
  Country: None (occurrence: None)
  Receive Date: 20120605
  Receipt Date: 20120530
  Transmission Date: 20120825
  Serious: Yes (Other)
  Sender: FDA-Public Use
  Company Number: US-JNJFOC-20120507169

PATIENT
  Sex: Female
  Weight: 77.11 kg

DRUGS (18)
  1. DURAGESIC-100 [Suspect]
     Route: 062
     Dates: start: 20090101, end: 20110101
  2. DURAGESIC-100 [Suspect]
     Route: 062
     Dates: start: 20110101, end: 20120301
  3. DIAZEPAM [Concomitant]
     Indication: MUSCLE RELAXANT THERAPY
     Route: 048
     Dates: start: 20080101
  4. LORAZEPAM [Concomitant]
     Indication: ANXIETY
     Route: 048
     Dates: start: 20080101
  5. DURAGESIC-100 [Suspect]
     Route: 062
     Dates: start: 20110101, end: 20120301
  6. FENTANYL CITRATE [Suspect]
     Indication: SPINAL OSTEOARTHRITIS
     Route: 062
     Dates: start: 20120301, end: 20120401
  7. DURAGESIC-100 [Suspect]
     Route: 062
     Dates: start: 20090101, end: 20110101
  8. DURAGESIC-100 [Suspect]
     Indication: RHEUMATOID ARTHRITIS
     Route: 062
     Dates: start: 20040101, end: 20090101
  9. FENTANYL CITRATE [Suspect]
     Indication: PSORIATIC ARTHROPATHY
     Route: 062
     Dates: start: 20120301, end: 20120401
  10. UNKNOWN MEDICATION [Concomitant]
     Indication: PRODUCT USED FOR UNKNOWN INDICATION
     Route: 050
  11. HYDROCODONE [Concomitant]
     Indication: PAIN
     Dosage: 10 MG OR 50 MG TABLETS; 3 TABLETS 3 TIMES A DAY
     Route: 048
     Dates: start: 20020101
  12. SENOKOT [Concomitant]
     Indication: ABNORMAL FAECES
     Dosage: 10 MG OR 50 MG TABLETS; 3 TABLETS 3 TIMES A DAY
     Route: 048
     Dates: start: 20000101
  13. FENTANYL CITRATE [Suspect]
     Indication: RHEUMATOID ARTHRITIS
     Route: 062
     Dates: start: 20120301, end: 20120401
  14. DURAGESIC-100 [Suspect]
     Indication: SPINAL OSTEOARTHRITIS
     Route: 062
     Dates: start: 20040101, end: 20090101
  15. DURAGESIC-100 [Suspect]
     Route: 062
     Dates: start: 20110101, end: 20120301
  16. ARTHROTEC [Concomitant]
     Indication: BONE DISORDER
     Route: 048
     Dates: start: 20020101, end: 20090101
  17. DURAGESIC-100 [Suspect]
     Indication: PSORIATIC ARTHROPATHY
     Route: 062
     Dates: start: 20040101, end: 20090101
  18. DURAGESIC-100 [Suspect]
     Route: 062
     Dates: start: 20090101, end: 20110101

REACTIONS (13)
  - DEPRESSION [None]
  - ULCER [None]
  - BACK PAIN [None]
  - CRYING [None]
  - WEIGHT DECREASED [None]
  - RHEUMATOID ARTHRITIS [None]
  - PSORIATIC ARTHROPATHY [None]
  - ARTHRALGIA [None]
  - PAIN [None]
  - SPINAL OSTEOARTHRITIS [None]
  - PRODUCT PACKAGING QUANTITY ISSUE [None]
  - TREATMENT NONCOMPLIANCE [None]
  - DRUG INEFFECTIVE [None]
